FAERS Safety Report 6840262-4 (Version None)
Quarter: 2010Q3

REPORT INFORMATION
  Report Type: 
  Country: None (occurrence: None)
  Receive Date: 20100713
  Receipt Date: 20100713
  Transmission Date: 20110219
  Serious: Yes (Life-Threatening)
  Sender: FDA-Public Use
  Company Number: None

PATIENT
  Age: 23 Year
  Sex: Female
  Weight: 60.4 kg

DRUGS (2)
  1. ETANERCEPT 50 MG AMGEN [Suspect]
     Indication: RHEUMATOID ARTHRITIS
     Dosage: 50 MG WEEKLY SQ
     Route: 058
     Dates: end: 20100701
  2. ETANERCEPT 50 MG AMGEN [Suspect]
     Indication: SYSTEMIC LUPUS ERYTHEMATOSUS
     Dosage: 50 MG WEEKLY SQ
     Route: 058
     Dates: end: 20100701

REACTIONS (1)
  - PROGRESSIVE MULTIFOCAL LEUKOENCEPHALOPATHY [None]
